FAERS Safety Report 9292703 (Version 1)
Quarter: 2013Q2

REPORT INFORMATION
  Report Type: Spontaneous
  Country: US (occurrence: None)
  Receive Date: 20130515
  Receipt Date: 20130515
  Transmission Date: 20140414
  Serious: No
  Sender: FDA-Public Use
  Company Number: None

PATIENT
  Age: 65 Year
  Sex: Male
  Weight: 73.94 kg

DRUGS (2)
  1. ESCITALOPRAM [Suspect]
     Indication: ANXIETY
     Dosage: 10 MG  1 DAILY  ORAL
     Route: 048
     Dates: start: 20121205, end: 20121214
  2. ESCITALOPRAM [Suspect]
     Indication: DEPRESSION
     Dosage: 10 MG  1 DAILY  ORAL
     Route: 048
     Dates: start: 20121205, end: 20121214

REACTIONS (3)
  - Nightmare [None]
  - Sleep disorder [None]
  - Product substitution issue [None]
